FAERS Safety Report 9662633 (Version 1)
Quarter: 2013Q4

REPORT INFORMATION
  Report Type: Spontaneous
  Country: US (occurrence: US)
  Receive Date: 20131031
  Receipt Date: 20131031
  Transmission Date: 20140711
  Serious: No
  Sender: FDA-Public Use
  Company Number: US-009507513-1310USA012546

PATIENT
  Age: 57 Year
  Sex: Female

DRUGS (1)
  1. DULERA [Suspect]
     Dosage: 2 PUFFS TWICE A DAY, ORAL INHALATION
     Route: 055
     Dates: start: 20131004, end: 201310

REACTIONS (2)
  - Pneumonia [Recovering/Resolving]
  - Product quality issue [Unknown]
